FAERS Safety Report 6148472-9 (Version None)
Quarter: 2009Q2

REPORT INFORMATION
  Report Type: 
  Country: None (occurrence: None)
  Receive Date: 20090408
  Receipt Date: 20090408
  Transmission Date: 20091009
  Serious: Yes (Other)
  Sender: FDA-Public Use
  Company Number: US-PFIZER INC-2007088995

PATIENT
  Sex: Female
  Weight: 47.727 kg

DRUGS (2)
  1. CHANTIX [Suspect]
     Dates: start: 20071016
  2. PROMETHAZINE [Suspect]
     Indication: NAUSEA
     Dates: start: 20071016

REACTIONS (5)
  - DIZZINESS [None]
  - FATIGUE [None]
  - MUTISM [None]
  - NAUSEA [None]
  - SOMNOLENCE [None]
